FAERS Safety Report 19880119 (Version 1)
Quarter: 2021Q3

REPORT INFORMATION
  Report Type: Spontaneous
  Country: US (occurrence: US)
  Receive Date: 20210924
  Receipt Date: 20210924
  Transmission Date: 20211014
  Serious: Yes (Death, Hospitalization)
  Sender: FDA-Public Use
  Company Number: US-MYLANLABS-2021M1065858

PATIENT
  Age: 8 Decade
  Sex: Female

DRUGS (10)
  1. PERTUZUMAB. [Suspect]
     Active Substance: PERTUZUMAB
     Indication: HER2 POSITIVE BREAST CANCER
     Dosage: UNK UNK, CYCLE (TWO CYCLES AS PART OF HP REGIMEN)
     Route: 065
  2. TRASTUZUMAB. [Suspect]
     Active Substance: TRASTUZUMAB
     Indication: HER2 POSITIVE BREAST CANCER
     Dosage: UNK UNK, CYCLE (TWO CYCLES AS PART OF HP REGIMEN)
     Route: 065
  3. PERTUZUMAB. [Suspect]
     Active Substance: PERTUZUMAB
     Indication: BREAST NEOPLASM
     Dosage: UNK UNK, CYCLE (SIX CYCLES AS PART OF NEOADJUVANT TCHP REGIMEN)
     Route: 065
  4. PACLITAXEL. [Concomitant]
     Active Substance: PACLITAXEL
     Indication: HER2 POSITIVE BREAST CANCER
  5. ADO?TRASTUZUMAB EMTANSINE. [Suspect]
     Active Substance: ADO-TRASTUZUMAB EMTANSINE
     Indication: HER2 POSITIVE BREAST CANCER
  6. PACLITAXEL. [Concomitant]
     Active Substance: PACLITAXEL
     Indication: BREAST NEOPLASM
     Dosage: UNK UNK, CYCLE (SIX CYCLES AS PART OF NEOADJUVANT TCHP REGIMEN)
     Route: 065
  7. CARBOPLATIN. [Concomitant]
     Active Substance: CARBOPLATIN
     Indication: BREAST NEOPLASM
     Dosage: UNK UNK, CYCLE (SIX CYCLES AS PART OF NEOADJUVANT TCHP REGIMEN)
     Route: 065
  8. CARBOPLATIN. [Concomitant]
     Active Substance: CARBOPLATIN
     Indication: HER2 POSITIVE BREAST CANCER
  9. TRASTUZUMAB. [Suspect]
     Active Substance: TRASTUZUMAB
     Indication: BREAST NEOPLASM
     Dosage: UNK UNK, CYCLE (SIX CYCLES AS PART OF NEOADJUVANT TCHP REGIMEN)
     Route: 065
  10. ADO?TRASTUZUMAB EMTANSINE. [Suspect]
     Active Substance: ADO-TRASTUZUMAB EMTANSINE
     Indication: BREAST NEOPLASM
     Dosage: UNK UNK, CYCLE (SCHEDULED TO BE ADMINISTERED FOR 14 CYCLES)
     Route: 065

REACTIONS (2)
  - Eosinophilic pneumonia acute [Fatal]
  - Acute respiratory failure [Fatal]
